FAERS Safety Report 26082071 (Version 1)
Quarter: 2025Q4

REPORT INFORMATION
  Report Type: Spontaneous
  Country: US (occurrence: None)
  Receive Date: 20251122
  Receipt Date: 20251122
  Transmission Date: 20260118
  Serious: Yes (Life-Threatening, Disabling)
  Sender: FDA-CTU
  Company Number: None

PATIENT
  Age: 29 Year
  Sex: Male

DRUGS (1)
  1. CIPRO [Suspect]
     Active Substance: CIPROFLOXACIN HYDROCHLORIDE

REACTIONS (8)
  - Neuropathy peripheral [None]
  - General physical health deterioration [None]
  - Nervous system disorder [None]
  - Tendon disorder [None]
  - Mitochondrial cytopathy [None]
  - Hypoacusis [None]
  - Visual impairment [None]
  - Balance disorder [None]

NARRATIVE: CASE EVENT DATE: 20241106
